FAERS Safety Report 6016699-2 (Version None)
Quarter: 2008Q4

REPORT INFORMATION
  Report Type: 
  Country: None (occurrence: None)
  Receive Date: 20081218
  Receipt Date: 20081203
  Transmission Date: 20090506
  Serious: Yes (Hospitalization)
  Sender: FDA-Public Use
  Company Number: 2008002991

PATIENT
  Age: 51 Year
  Sex: Male
  Weight: 71.7 kg

DRUGS (5)
  1. ERLOTINIB (ERLOTINIB) (TABLET) (ERLOTINIB) [Suspect]
     Indication: HEAD AND NECK CANCER
     Dosage: 150 MG, ORAL
     Route: 048
     Dates: start: 20080911
  2. BEVACIZUMAB [Suspect]
     Indication: HEAD AND NECK CANCER
     Dosage: 15 MG/KG
     Dates: start: 20080911
  3. CARBOPLATIN [Suspect]
     Dates: start: 20080911
  4. PACLITAXEL [Suspect]
     Dosage: 50 MG/M2
  5. FLUOROURACIL [Suspect]

REACTIONS (3)
  - HYPOPHAGIA [None]
  - MUCOSAL INFLAMMATION [None]
  - PNEUMATOSIS INTESTINALIS [None]
